FAERS Safety Report 23033999 (Version 2)
Quarter: 2023Q4

REPORT INFORMATION
  Report Type: Spontaneous
  Country: AT (occurrence: AT)
  Receive Date: 20231005
  Receipt Date: 20231018
  Transmission Date: 20240110
  Serious: Yes (Hospitalization, Other)
  Sender: FDA-Public Use
  Company Number: AT-ROCHE-3017431

PATIENT
  Age: 48 Year
  Sex: Female
  Weight: 58 kg

DRUGS (63)
  1. TRASTUZUMAB [Suspect]
     Active Substance: TRASTUZUMAB
     Indication: HER2 positive breast cancer
     Route: 042
     Dates: end: 20230206
  2. TRASTUZUMAB [Suspect]
     Active Substance: TRASTUZUMAB
     Dosage: INFUSION, SOLUTION
     Route: 042
     Dates: start: 20190724, end: 20190912
  3. ADO-TRASTUZUMAB EMTANSINE [Suspect]
     Active Substance: ADO-TRASTUZUMAB EMTANSINE
     Indication: HER2 positive breast cancer
     Dosage: INFUSION, SOLUTION
     Route: 042
     Dates: start: 20191014, end: 20200518
  4. ADO-TRASTUZUMAB EMTANSINE [Suspect]
     Active Substance: ADO-TRASTUZUMAB EMTANSINE
     Dosage: MOST RECENT DOSE PRIOR TO AE 03-JUL-2020
     Route: 042
     Dates: start: 20200703, end: 20200703
  5. FAM-TRASTUZUMAB DERUXTECAN-NXKI [Suspect]
     Active Substance: FAM-TRASTUZUMAB DERUXTECAN-NXKI
     Indication: HER2 positive breast cancer
     Dosage: MOST RECENT DOSE PRIOR TO AE 31-JAN-2022 1TIMES IN 3 WEEK
     Route: 042
     Dates: start: 20220110, end: 20220131
  6. FAM-TRASTUZUMAB DERUXTECAN-NXKI [Suspect]
     Active Substance: FAM-TRASTUZUMAB DERUXTECAN-NXKI
     Route: 042
     Dates: start: 20220324, end: 20220324
  7. FAM-TRASTUZUMAB DERUXTECAN-NXKI [Suspect]
     Active Substance: FAM-TRASTUZUMAB DERUXTECAN-NXKI
     Route: 042
     Dates: start: 20220419
  8. LAPATINIB [Suspect]
     Active Substance: LAPATINIB
     Indication: HER2 positive breast cancer
     Dosage: MOST RECENT DOSE PRIOR TO THE EVENT: 09-JAN-2021?5 TIMES DAILY
     Route: 048
     Dates: start: 20200923, end: 20201228
  9. LAPATINIB [Suspect]
     Active Substance: LAPATINIB
     Dosage: MOST RECENT DOSE PRIOR TO AE 16-DEC-2021
     Route: 048
     Dates: start: 20210109, end: 20211216
  10. PERTUZUMAB [Suspect]
     Active Substance: PERTUZUMAB
     Indication: HER2 positive breast cancer
     Dosage: MOST RECENT DOSE PRIOR TO AE 12-SEP-2019, INFUSION, SOLUTION
     Route: 042
     Dates: start: 20190724, end: 20190912
  11. CAPECITABINE [Suspect]
     Active Substance: CAPECITABINE
     Indication: HER2 positive breast cancer
     Dosage: OTHER SIX TIMES A DAY FOR 14 DAYS, 7 DAYS BREAK
     Route: 048
     Dates: start: 20200923, end: 20201220
  12. CAPECITABINE [Suspect]
     Active Substance: CAPECITABINE
     Dosage: MOST RECENT DOSE PRIOR TO AE 09-DEC-2021
     Route: 048
     Dates: start: 20210109, end: 20211209
  13. PACLITAXEL [Suspect]
     Active Substance: PACLITAXEL
     Indication: HER2 positive breast cancer
     Dosage: MOST RECENT DOSE PRIOR TO AE 12-SEP-2019
     Route: 042
     Dates: start: 20190724, end: 20190912
  14. CEOLAT [Concomitant]
     Indication: Product used for unknown indication
     Dosage: OTHER UP TO 3 X DAILY 10 ML
     Route: 048
     Dates: start: 20190815
  15. POLYETHYLENE GLYCOL 4000 [Concomitant]
     Active Substance: POLYETHYLENE GLYCOL 4000
     Indication: Product used for unknown indication
     Dosage: ONGOING CHECKED
     Route: 048
     Dates: start: 20190705
  16. DEXAMETHASONE [Concomitant]
     Active Substance: DEXAMETHASONE
     Indication: COVID-19
     Dosage: UNKNOWN
     Route: 048
     Dates: start: 20220113, end: 20220114
  17. DEXAMETHASONE [Concomitant]
     Active Substance: DEXAMETHASONE
     Dosage: UNKNOWN
     Route: 048
     Dates: start: 20220111, end: 20220112
  18. DEXAMETHASONE [Concomitant]
     Active Substance: DEXAMETHASONE
     Route: 048
     Dates: start: 20190705, end: 20190914
  19. DEXAMETHASONE [Concomitant]
     Active Substance: DEXAMETHASONE
     Dosage: UNKNOWN
     Route: 065
     Dates: start: 20220115, end: 20220323
  20. DEXAMETHASONE [Concomitant]
     Active Substance: DEXAMETHASONE
     Route: 042
     Dates: start: 20190704, end: 20190912
  21. DEXAMETHASONE [Concomitant]
     Active Substance: DEXAMETHASONE
     Route: 042
     Dates: start: 20220110
  22. DEXAMETHASONE [Concomitant]
     Active Substance: DEXAMETHASONE
     Dosage: ONGOING NOT CHECKED
     Route: 048
     Dates: start: 20210302, end: 20210304
  23. DEXAMETHASONE [Concomitant]
     Active Substance: DEXAMETHASONE
     Route: 048
     Dates: start: 20220622
  24. DEXAMETHASONE [Concomitant]
     Active Substance: DEXAMETHASONE
     Dosage: UNKNOWN
     Route: 065
     Dates: start: 20211229, end: 20220110
  25. EMEND [Concomitant]
     Active Substance: APREPITANT
     Indication: Product used for unknown indication
     Route: 048
     Dates: start: 20220621
  26. EMEND [Concomitant]
     Active Substance: APREPITANT
     Route: 048
     Dates: start: 20220621
  27. HYDROMORPHONE HYDROCHLORIDE [Concomitant]
     Active Substance: HYDROMORPHONE HYDROCHLORIDE
     Indication: Product used for unknown indication
     Dosage: PRN
     Route: 048
     Dates: start: 20190716
  28. HYDROMORPHONE HYDROCHLORIDE [Concomitant]
     Active Substance: HYDROMORPHONE HYDROCHLORIDE
     Dosage: 2 TIMES IN 1 DAY/1 DAY
     Route: 048
     Dates: start: 20190716, end: 20200927
  29. HYDROMORPHONE HYDROCHLORIDE [Concomitant]
     Active Substance: HYDROMORPHONE HYDROCHLORIDE
     Dosage: 2 TIMES IN 1 DAY/1 DAY
     Route: 048
     Dates: start: 20220207
  30. EUTHYROX [Concomitant]
     Active Substance: LEVOTHYROXINE SODIUM
     Indication: Product used for unknown indication
     Route: 048
     Dates: end: 201906
  31. EUTHYROX [Concomitant]
     Active Substance: LEVOTHYROXINE SODIUM
     Route: 048
     Dates: start: 20200930, end: 20210108
  32. EUTHYROX [Concomitant]
     Active Substance: LEVOTHYROXINE SODIUM
     Route: 048
     Dates: start: 20190703, end: 20200929
  33. DRONABINOL [Concomitant]
     Active Substance: DRONABINOL
     Indication: Product used for unknown indication
     Dosage: 2 DROP-2 DROP-2 DROP
     Route: 048
     Dates: start: 20190716, end: 20210804
  34. DRONABINOL [Concomitant]
     Active Substance: DRONABINOL
     Dosage: ONGOING CHECKED
     Route: 048
     Dates: start: 20210705
  35. NEULASTA [Concomitant]
     Active Substance: PEGFILGRASTIM
     Indication: Product used for unknown indication
     Dosage: UNKNOWN
     Route: 065
     Dates: start: 20220420
  36. LENDORM [Concomitant]
     Active Substance: BROTIZOLAM
     Indication: Insomnia
     Dosage: PRN
     Route: 048
     Dates: start: 20211229, end: 20211229
  37. CALCIDURAN [ASCORBIC ACID;CALCIUM PHOSPHATE;CITRIC ACID;COLECALCIFEROL [Concomitant]
     Indication: Product used for unknown indication
     Dosage: ONGOING CHECKED
     Route: 048
     Dates: start: 20190717
  38. LOVENOX [Concomitant]
     Active Substance: ENOXAPARIN SODIUM
     Indication: COVID-19
     Dosage: ONGOING NOT CHECKED
     Route: 030
     Dates: start: 20210302, end: 20210305
  39. AMOXICILLIN\CLAVULANATE POTASSIUM [Concomitant]
     Active Substance: AMOXICILLIN\CLAVULANATE POTASSIUM
     Indication: Influenza
     Dosage: 2 TIMES IN 1 DAY, 0.5 DAY
     Route: 048
     Dates: start: 20200527, end: 20200602
  40. ZOFRAN [Concomitant]
     Active Substance: ONDANSETRON HYDROCHLORIDE
     Indication: COVID-19
     Dosage: PRN/ONGOING CHECKED
     Route: 048
     Dates: start: 20190701
  41. ZOFRAN [Concomitant]
     Active Substance: ONDANSETRON HYDROCHLORIDE
     Dosage: PRN
     Route: 042
     Dates: start: 20190704, end: 20200703
  42. ZOFRAN [Concomitant]
     Active Substance: ONDANSETRON HYDROCHLORIDE
     Dosage: 2 TIMES IN 1 DAY/0.5 DAYS
     Route: 067
     Dates: start: 20190705, end: 20190914
  43. ZOFRAN [Concomitant]
     Active Substance: ONDANSETRON HYDROCHLORIDE
     Dosage: ONGOING CHECKED
     Route: 042
     Dates: start: 20220110
  44. ZOFRAN [Concomitant]
     Active Substance: ONDANSETRON HYDROCHLORIDE
     Dosage: ONGOING NOT CHECKED
     Route: 048
     Dates: start: 20210302, end: 20210302
  45. ORNITHINE ASPARTATE [Concomitant]
     Active Substance: ORNITHINE ASPARTATE
     Indication: Product used for unknown indication
     Dosage: DOSE: UNKNOWN, 2 TIMES IN 1 DAY
     Route: 065
  46. URSODIOL [Concomitant]
     Active Substance: URSODIOL
     Indication: Gamma-glutamyltransferase increased
     Dosage: UNKNOWN
     Route: 065
     Dates: start: 20220401
  47. SUCRALAN [Concomitant]
     Indication: Product used for unknown indication
     Dosage: PRN
     Route: 048
     Dates: start: 20190701
  48. NEURONTIN [Concomitant]
     Active Substance: GABAPENTIN
     Indication: Product used for unknown indication
     Dosage: 2 TIMES IN 1 DAY/0.5 DAYS
     Route: 048
     Dates: start: 201908, end: 201908
  49. PANTOPRAZOLE SODIUM [Concomitant]
     Active Substance: PANTOPRAZOLE SODIUM
     Indication: COVID-19
     Dosage: ONGOING CHECKED, DOSE: UNKNOWN
     Route: 065
     Dates: start: 20210302, end: 20210303
  50. PANTOPRAZOLE SODIUM [Concomitant]
     Active Substance: PANTOPRAZOLE SODIUM
     Dosage: ONGOING CHECKED
     Route: 048
     Dates: start: 20210222, end: 20210302
  51. PANTOPRAZOLE SODIUM [Concomitant]
     Active Substance: PANTOPRAZOLE SODIUM
     Dosage: ONGOING CHECKED
     Route: 048
     Dates: start: 20190701
  52. UNASYN [Concomitant]
     Active Substance: AMPICILLIN SODIUM\SULBACTAM SODIUM
     Indication: Product used for unknown indication
     Dosage: UNKNOWN
     Route: 065
     Dates: start: 20220919
  53. OLANZAPINE [Concomitant]
     Active Substance: OLANZAPINE
     Indication: Product used for unknown indication
     Dosage: OTHER 0-0-1/2
     Route: 048
     Dates: start: 20190904, end: 20200926
  54. OLANZAPINE [Concomitant]
     Active Substance: OLANZAPINE
     Dosage: OTHER 0-0-1/2
     Route: 048
     Dates: start: 20190821, end: 20190904
  55. ACETAMINOPHEN [Concomitant]
     Active Substance: ACETAMINOPHEN
     Indication: Product used for unknown indication
     Dosage: PRN/ONGOING CHECKED
     Route: 048
     Dates: start: 20190701
  56. CITALOPRAM [Concomitant]
     Active Substance: CITALOPRAM HYDROBROMIDE
     Indication: Product used for unknown indication
     Dosage: ONGOING CHECKED
     Route: 048
     Dates: start: 20190715
  57. PFIZER-BIONTECH COVID-19 VACCINE [Concomitant]
     Active Substance: TOZINAMERAN
     Indication: Product used for unknown indication
     Dosage: UNKNOWN
     Route: 065
     Dates: start: 20220125, end: 20220125
  58. TRAZODONE HYDROCHLORIDE [Concomitant]
     Active Substance: TRAZODONE HYDROCHLORIDE
     Indication: Product used for unknown indication
     Route: 048
     Dates: start: 20190716, end: 20200926
  59. LOPERAMIDE HYDROCHLORIDE [Concomitant]
     Active Substance: LOPERAMIDE HYDROCHLORIDE
     Indication: Diarrhoea
     Dosage: DOSE: UNKNOWN, PRN
     Route: 048
     Dates: start: 20210215
  60. ALPRAZOLAM [Concomitant]
     Active Substance: ALPRAZOLAM
     Indication: Product used for unknown indication
     Dosage: PRN
     Route: 048
     Dates: start: 20190715
  61. TUCATINIB [Concomitant]
     Active Substance: TUCATINIB
     Indication: Product used for unknown indication
     Dosage: MOST RECENT DOSE PRIOR TO THE EVENT: 22-JAN-2023
     Route: 048
     Dates: start: 20230102
  62. ACETAMINOPHEN [Concomitant]
     Active Substance: ACETAMINOPHEN
     Indication: COVID-19
     Dosage: PRN (AS NEEDED)
     Route: 048
     Dates: start: 20210302, end: 20210303
  63. VALACYCLOVIR HYDROCHLORIDE [Concomitant]
     Active Substance: VALACYCLOVIR HYDROCHLORIDE
     Indication: Product used for unknown indication
     Route: 048
     Dates: start: 20190716, end: 20191011

REACTIONS (13)
  - Vascular device infection [Recovered/Resolved]
  - Intracranial pressure increased [Recovered/Resolved]
  - Insomnia [Not Recovered/Not Resolved]
  - Gamma-glutamyltransferase increased [Recovered/Resolved]
  - Iron deficiency anaemia [Recovered/Resolved]
  - Neutropenia [Recovered/Resolved]
  - Thrombocytopenia [Not Recovered/Not Resolved]
  - COVID-19 [Recovered/Resolved]
  - Diarrhoea [Recovered/Resolved]
  - Blood bilirubin increased [Recovered/Resolved]
  - General physical health deterioration [Recovered/Resolved]
  - Aphthous ulcer [Recovered/Resolved]
  - Asthenia [Recovered/Resolved]

NARRATIVE: CASE EVENT DATE: 20201228
